FAERS Safety Report 7343231-3 (Version None)
Quarter: 2011Q1

REPORT INFORMATION
  Report Type: 
  Country: None (occurrence: None)
  Receive Date: 20110310
  Receipt Date: 20110303
  Transmission Date: 20110831
  Serious: Yes (Other)
  Sender: FDA-Public Use
  Company Number: US-AMGEN-USASP2011012269

PATIENT
  Age: 56 Year
  Sex: Female

DRUGS (1)
  1. PROLIA [Suspect]
     Indication: OSTEOPOROSIS POSTMENOPAUSAL
     Dates: start: 20100901

REACTIONS (5)
  - RASH PUSTULAR [None]
  - EXFOLIATIVE RASH [None]
  - RASH [None]
  - LACERATION [None]
  - RASH ERYTHEMATOUS [None]
